FAERS Safety Report 20311639 (Version 1)
Quarter: 2022Q1

REPORT INFORMATION
  Report Type: Spontaneous
  Country: US (occurrence: US)
  Receive Date: 20220108
  Receipt Date: 20220108
  Transmission Date: 20220423
  Serious: Yes (Hospitalization)
  Sender: FDA-Public Use
  Company Number: US-AVET LIFESCIENCES LTD-2022-AVET-000001

PATIENT
  Age: 64 Year
  Sex: Female

DRUGS (6)
  1. ADENOSINE [Interacting]
     Active Substance: ADENOSINE
     Indication: Product used for unknown indication
     Route: 042
  2. TICAGRELOR [Interacting]
     Active Substance: TICAGRELOR
     Indication: Product used for unknown indication
     Dosage: 180 MILLIGRAM
     Route: 048
  3. ASPIRIN [Concomitant]
     Active Substance: ASPIRIN
     Dosage: 81 MILLIGRAM, QD
     Route: 048
  4. ATORVASTATIN [Concomitant]
     Active Substance: ATORVASTATIN
  5. LABETALOL [Concomitant]
     Active Substance: LABETALOL\LABETALOL HYDROCHLORIDE
     Dosage: 300 MILLIGRAM, BID
     Route: 048
  6. ANGIOMAX [Concomitant]
     Active Substance: BIVALIRUDIN

REACTIONS (3)
  - Sinus arrest [Recovering/Resolving]
  - Ventricular asystole [Recovering/Resolving]
  - Drug interaction [Unknown]
